FAERS Safety Report 5380423-7 (Version None)
Quarter: 2007Q3

REPORT INFORMATION
  Report Type: 
  Country: None (occurrence: None)
  Receive Date: 20070706
  Receipt Date: 20070620
  Transmission Date: 20080115
  Serious: No
  Sender: FDA-Public Use
  Company Number: A0653176A

PATIENT
  Age: 66 Year
  Sex: Female
  Weight: 79.1 kg

DRUGS (4)
  1. TYKERB [Suspect]
     Indication: BREAST CANCER
     Dosage: 250MG UNKNOWN
     Route: 048
     Dates: start: 20070501
  2. HERCEPTIN [Concomitant]
     Indication: BREAST CANCER
     Route: 042
     Dates: start: 20070510
  3. AROMASIN [Concomitant]
  4. AVASTIN [Concomitant]

REACTIONS (1)
  - DIARRHOEA [None]
